FAERS Safety Report 23626973 (Version 1)
Quarter: 2024Q1

REPORT INFORMATION
  Report Type: Report from Study
  Country: US (occurrence: US)
  Receive Date: 20240313
  Receipt Date: 20240313
  Transmission Date: 20240409
  Serious: No
  Sender: FDA-Public Use
  Company Number: US-SPRINGWORKS THERAPEUTICS-SW-000796

PATIENT
  Age: 69 Year
  Sex: Female
  Weight: 87.3 kg

DRUGS (6)
  1. NIROGACESTAT [Suspect]
     Active Substance: NIROGACESTAT
     Indication: Desmoid tumour
     Dosage: 50 MG TABLETS, 2 TABS IN AM AND 2 TABS IN PM
     Route: 048
     Dates: start: 20211018, end: 20221115
  2. NIROGACESTAT [Suspect]
     Active Substance: NIROGACESTAT
     Dosage: 50 MILLIGRAM, BID
     Route: 048
     Dates: start: 20230228
  3. GABAPENTIN [Concomitant]
     Active Substance: GABAPENTIN
     Indication: Product used for unknown indication
     Dosage: UNK
  4. PREGABALIN [Concomitant]
     Active Substance: PREGABALIN
     Indication: Pain
  5. CLARITIN [Concomitant]
     Active Substance: LORATADINE
     Indication: Upper-airway cough syndrome
     Dosage: 10 MILLIGRAM
     Dates: start: 20220524
  6. XANAX [Concomitant]
     Active Substance: ALPRAZOLAM
     Indication: Anxiety
     Dosage: 0.5 MILLIGRAM
     Dates: start: 20210827

REACTIONS (3)
  - Folliculitis [Recovered/Resolved]
  - Hidradenitis [Recovered/Resolved]
  - Folliculitis [Recovered/Resolved]

NARRATIVE: CASE EVENT DATE: 20220826
